FAERS Safety Report 17257380 (Version 1)
Quarter: 2020Q1

REPORT INFORMATION
  Report Type: Spontaneous
  Country: US (occurrence: US)
  Receive Date: 20200109
  Receipt Date: 20200109
  Transmission Date: 20200409
  Serious: Yes (Hospitalization, Other)
  Sender: FDA-Public Use
  Company Number: None

PATIENT
  Age: 45 Year
  Sex: Female

DRUGS (18)
  1. VIT. D [Concomitant]
  2. PREMARIN [Concomitant]
     Active Substance: ESTROGENS, CONJUGATED
  3. TRAZODONE [Concomitant]
     Active Substance: TRAZODONE HYDROCHLORIDE
  4. BUDESONIDE. [Concomitant]
     Active Substance: BUDESONIDE
  5. LEFLUNOMIDE. [Concomitant]
     Active Substance: LEFLUNOMIDE
  6. METAXALONE. [Concomitant]
     Active Substance: METAXALONE
  7. ALBUTEROL AER HFA [Concomitant]
  8. LEVOFLOXACIN. [Concomitant]
     Active Substance: LEVOFLOXACIN
  9. FLUTICASONE. [Concomitant]
     Active Substance: FLUTICASONE
  10. CYCLOBENZAPR [Concomitant]
     Active Substance: CYCLOBENZAPRINE
  11. OXCARBAZEPIN [Concomitant]
     Active Substance: OXCARBAZEPINE
  12. PREDNISONE. [Concomitant]
     Active Substance: PREDNISONE
  13. LOSARTAN POT [Concomitant]
     Active Substance: LOSARTAN POTASSIUM
  14. ORENCIA [Suspect]
     Active Substance: ABATACEPT
     Indication: RHEUMATOID ARTHRITIS
     Dosage: ?          OTHER FREQUENCY:EVERY WEEK;?
     Route: 058
     Dates: start: 20191003
  15. BUSPIRONE [Concomitant]
     Active Substance: BUSPIRONE HYDROCHLORIDE
  16. FLUCONAZOLE. [Concomitant]
     Active Substance: FLUCONAZOLE
  17. GABAPENTIN. [Concomitant]
     Active Substance: GABAPENTIN
  18. DOXYCYC MONO [Concomitant]
     Active Substance: DOXYCYCLINE

REACTIONS (3)
  - Therapy cessation [None]
  - Bronchitis [None]
  - Infection [None]
